FAERS Safety Report 10215603 (Version 1)
Quarter: 2014Q2

REPORT INFORMATION
  Report Type: Spontaneous
  Country: FR (occurrence: FR)
  Receive Date: 20140604
  Receipt Date: 20140604
  Transmission Date: 20141212
  Serious: Yes (Life-Threatening, Hospitalization)
  Sender: FDA-Public Use
  Company Number: FR-BRISTOL-MYERS SQUIBB COMPANY-20820064

PATIENT
  Age: 54 Year
  Sex: Male

DRUGS (2)
  1. ABILIFY TABS 10 MG [Suspect]
     Indication: BIPOLAR DISORDER
     Dosage: THE LAST DOSE WAS TAKEN ON 29-APR-2014
     Route: 048
     Dates: start: 20140426, end: 20140429
  2. PARACETAMOL [Suspect]
     Dosage: ONE DOSE ON 18-APR-2014 AND 26-APR-2014
     Dates: start: 20140418

REACTIONS (4)
  - Coma [Recovered/Resolved]
  - Hepatitis [Recovering/Resolving]
  - Respiratory distress [Recovered/Resolved]
  - Emphysema [None]
